FAERS Safety Report 8905798 (Version 1)
Quarter: 2012Q4

REPORT INFORMATION
  Report Type: 
  Country: FR (occurrence: FR)
  Receive Date: 20121113
  Receipt Date: 20121113
  Transmission Date: 20130627
  Serious: Yes (Hospitalization)
  Sender: FDA-Public Use
  Company Number: FR-GLAXOSMITHKLINE-B0841886A

PATIENT
  Age: 72 Year
  Sex: Female

DRUGS (9)
  1. DERMOVAL [Suspect]
     Indication: PEMPHIGOID
     Dosage: 40G Per day
     Route: 061
     Dates: start: 20120628, end: 20120719
  2. CLAMOXYL [Concomitant]
     Indication: DENTAL CARE
     Route: 048
     Dates: start: 201205, end: 201205
  3. SECTRAL [Concomitant]
     Route: 065
  4. ZOLPIDEM [Concomitant]
     Route: 065
  5. SEROPLEX [Concomitant]
     Route: 065
  6. LEVOTHYROX [Concomitant]
     Route: 065
  7. CALCIFORTE [Concomitant]
     Route: 065
  8. VITAMINE D3 [Concomitant]
     Route: 065
  9. ALPRAZOLAM [Concomitant]
     Route: 065

REACTIONS (4)
  - Adrenal insufficiency [Recovering/Resolving]
  - Hyponatraemia [Unknown]
  - Hyperkalaemia [Unknown]
  - Overdose [Unknown]
